FAERS Safety Report 15785832 (Version 1)
Quarter: 2019Q1

REPORT INFORMATION
  Report Type: Report from Study
  Country: IL (occurrence: IL)
  Receive Date: 20190103
  Receipt Date: 20190103
  Transmission Date: 20190417
  Serious: Yes (Hospitalization, Other)
  Sender: FDA-Public Use
  Company Number: IL-SA-2018SA397285

PATIENT
  Sex: Male

DRUGS (1)
  1. INSULIN GLARGINE [Suspect]
     Active Substance: INSULIN GLARGINE
     Dosage: SUNK UNK, QD
     Route: 058
     Dates: end: 201803

REACTIONS (4)
  - Cerebrovascular accident [Recovered/Resolved with Sequelae]
  - Intentional product misuse [Unknown]
  - Blood glucose fluctuation [Unknown]
  - Muscular weakness [Unknown]

NARRATIVE: CASE EVENT DATE: 201803
